FAERS Safety Report 4630029-X (Version None)
Quarter: 2005Q2

REPORT INFORMATION
  Report Type: 
  Country: None (occurrence: None)
  Receive Date: 20050408
  Receipt Date: 20050209
  Transmission Date: 20051028
  Serious: Yes (Hospitalization)
  Sender: FDA-Public Use
  Company Number: JP-ROCHE-395652

PATIENT
  Age: 9 Year
  Sex: Male

DRUGS (1)
  1. TAMIFLU [Suspect]
     Route: 048
     Dates: start: 20040207, end: 20040208

REACTIONS (8)
  - ASTHENIA [None]
  - CIRCULATORY COLLAPSE [None]
  - DELIRIUM [None]
  - FEAR [None]
  - RESTLESSNESS [None]
  - SCREAMING [None]
  - SLEEP DISORDER [None]
  - STARING [None]
